FAERS Safety Report 19584021 (Version 1)
Quarter: 2021Q3

REPORT INFORMATION
  Report Type: Spontaneous
  Country: SE (occurrence: SE)
  Receive Date: 20210720
  Receipt Date: 20210720
  Transmission Date: 20211014
  Serious: Yes (Other)
  Sender: FDA-Public Use
  Company Number: SE-MYLANLABS-2021M1042567

PATIENT
  Age: 22 Year
  Sex: Female
  Weight: 80 kg

DRUGS (1)
  1. LERGIGAN 25 MG FILMDRAGERADE TABLETTER [Suspect]
     Active Substance: PROMETHAZINE HYDROCHLORIDE
     Indication: SLEEP DISORDER
     Dosage: 50 MILLIGRAM, QD (2ST 25MG TABLETTER TILL NATTEN.)
     Dates: start: 20210105, end: 20210107

REACTIONS (2)
  - Accommodation disorder [Recovering/Resolving]
  - Vision blurred [Recovering/Resolving]

NARRATIVE: CASE EVENT DATE: 20210107
